FAERS Safety Report 5756635-7 (Version None)
Quarter: 2008Q2

REPORT INFORMATION
  Report Type: 
  Country: None (occurrence: None)
  Receive Date: 20080603
  Receipt Date: 20080529
  Transmission Date: 20081010
  Serious: Yes (Death)
  Sender: FDA-Public Use
  Company Number: US-BRISTOL-MYERS SQUIBB COMPANY-14210215

PATIENT
  Age: 85 Year
  Sex: Female
  Weight: 60 kg

DRUGS (10)
  1. KENALOG-40 [Suspect]
     Route: 030
     Dates: start: 20071130
  2. BROVANA [Suspect]
     Indication: CHRONIC OBSTRUCTIVE PULMONARY DISEASE
     Dosage: 1 DOSAGE FORM= (15UG/2ML)
     Route: 055
     Dates: start: 20071130
  3. XOPENEX [Suspect]
     Dosage: ROUTE: INHALATION.
  4. CORTICOSTEROID [Concomitant]
  5. PREDNISONE TAB [Concomitant]
     Dates: start: 20071130
  6. OXYGEN [Concomitant]
  7. SPIRIVA [Concomitant]
  8. ADVAIR DISKUS 100/50 [Concomitant]
  9. ALBUTEROL [Concomitant]
  10. ZITHROMAX [Concomitant]
     Dates: start: 20071130, end: 20071201

REACTIONS (1)
  - CHRONIC OBSTRUCTIVE PULMONARY DISEASE [None]
